FAERS Safety Report 12272495 (Version 1)
Quarter: 2016Q2

REPORT INFORMATION
  Report Type: Spontaneous
  Country: US (occurrence: US)
  Receive Date: 20160415
  Receipt Date: 20160415
  Transmission Date: 20160815
  Serious: No
  Sender: FDA-Public Use
  Company Number: US-ELI_LILLY_AND_COMPANY-US201603007311

PATIENT
  Sex: Female

DRUGS (1)
  1. HUMULIN R [Suspect]
     Active Substance: INSULIN HUMAN
     Indication: GESTATIONAL DIABETES
     Dosage: 38 U, EACH EVENING
     Route: 065
     Dates: start: 2015

REACTIONS (1)
  - Maternal exposure timing unspecified [Unknown]

NARRATIVE: CASE EVENT DATE: 2015
